FAERS Safety Report 11079497 (Version 2)
Quarter: 2020Q2

REPORT INFORMATION
  Report Type: Report from Study
  Country: FR (occurrence: FR)
  Receive Date: 20150430
  Receipt Date: 20200418
  Transmission Date: 20200713
  Serious: Yes (Hospitalization)
  Sender: FDA-Public Use
  Company Number: PHHY2015FR050222

PATIENT
  Age: 7 Year
  Sex: Male
  Weight: 21.5 kg

DRUGS (1)
  1. SOMATROPIN. [Suspect]
     Active Substance: SOMATROPIN
     Indication: SMALL FOR DATES BABY
     Dosage: 0.8 UG, QD
     Route: 065
     Dates: start: 20140212

REACTIONS (11)
  - Gastroenteritis viral [Recovered/Resolved]
  - Blood glucose fluctuation [Unknown]
  - Blood bicarbonate decreased [Unknown]
  - Diarrhoea [Unknown]
  - Blood creatinine abnormal [Unknown]
  - Vomiting [Unknown]
  - Pallor [Unknown]
  - Asthenia [Unknown]
  - Presyncope [Unknown]
  - Malaise [Recovered/Resolved]
  - Blood urea increased [Unknown]

NARRATIVE: CASE EVENT DATE: 20150222
